FAERS Safety Report 8515221-6 (Version None)
Quarter: 2012Q3

REPORT INFORMATION
  Report Type: 
  Country: None (occurrence: None)
  Receive Date: 20120717
  Receipt Date: 20120710
  Transmission Date: 20120928
  Serious: Yes (Hospitalization)
  Sender: FDA-Public Use
  Company Number: IT-ASTRAZENECA-2012SE39342

PATIENT
  Age: 25716 Day
  Sex: Male

DRUGS (17)
  1. ALFUZOSIN HYDROCHLORIDE [Concomitant]
  2. ACYCLOVIR [Concomitant]
     Route: 048
     Dates: start: 20120516
  3. PROSTIGMINA [Concomitant]
     Dosage: 0.5 MG/ML INJECTABLE SOLUTION
  4. GLUCONATE CALCIUM [Concomitant]
  5. OPTIRAY 160 [Concomitant]
     Indication: COMPUTERISED TOMOGRAM
     Dosage: 350 MG/ML INJECTABLE SOLUTION; 130 ML
     Route: 042
  6. DECADRON [Concomitant]
     Route: 048
  7. KEPPRA [Concomitant]
     Indication: CONVULSION
     Route: 048
     Dates: start: 20120519
  8. ENOXAPARIN SODIUM [Concomitant]
     Route: 058
  9. LASIX [Concomitant]
     Dosage: 20MG/2ML INJECTABLE SOLUTION ; 3 DF
     Route: 042
  10. OMNIPAQUE (IOHEXOL) [Concomitant]
     Indication: COMPUTERISED TOMOGRAM THORAX
     Dosage: 350 MG I/ML VIAL SOLUTION FOR INJECTION, 130 ML
     Dates: start: 20120529, end: 20120529
  11. AMPICILLIN [Suspect]
     Indication: ENCEPHALITIS
     Route: 042
     Dates: start: 20120519, end: 20120529
  12. PHENYTOIN SODIUM [Suspect]
     Indication: CONVULSION
     Dosage: 250MG/5 ML INJECTABLE SOLUTION; 4 DF DAILY
     Route: 042
     Dates: start: 20120516, end: 20120529
  13. ASPIRIN [Concomitant]
     Route: 048
  14. GLICOREST [Concomitant]
     Dosage: 5 MG + 500 MG FILM COATED TABLETS; 3 DF
     Route: 048
  15. LANTUS [Concomitant]
     Dosage: 100 U/ML INJECTABLE SOLUTION
     Route: 058
  16. OMEPRAZOLE [Concomitant]
     Route: 048
  17. MERREM [Suspect]
     Indication: ENCEPHALITIS
     Dosage: 1000 MG POWDER FOR INJACTABLE SOLUTION; 3 G DAILY
     Route: 042
     Dates: start: 20120529, end: 20120531

REACTIONS (1)
  - RASH MACULO-PAPULAR [None]
